FAERS Safety Report 14624389 (Version 1)
Quarter: 2018Q1

REPORT INFORMATION
  Report Type: Spontaneous
  Country: US (occurrence: US)
  Receive Date: 20180309
  Receipt Date: 20180309
  Transmission Date: 20180509
  Serious: Yes (Other)
  Sender: FDA-Public Use
  Company Number: None

PATIENT
  Age: 53 Year
  Sex: Female
  Weight: 76.95 kg

DRUGS (7)
  1. OXYCODONE/ACETAMINOPHEN 5-325MG, 5325 MG [Suspect]
     Active Substance: ACETAMINOPHEN\OXYCODONE HYDROCHLORIDE
     Indication: PAIN MANAGEMENT
     Dosage: ?          QUANTITY:120 TABLET(S);?
     Route: 048
     Dates: start: 20180309
  2. IBUPROFEN. [Concomitant]
     Active Substance: IBUPROFEN
  3. OXYCODONE/ACETAMINOPHEN 5-325MG, 5325 MG [Suspect]
     Active Substance: ACETAMINOPHEN\OXYCODONE HYDROCHLORIDE
     Indication: NEOPLASM MALIGNANT
     Dosage: ?          QUANTITY:120 TABLET(S);?
     Route: 048
     Dates: start: 20180309
  4. VITAMIN D [Concomitant]
     Active Substance: CHOLECALCIFEROL
  5. OXYCODONE/ACETAMINOPHEN 5-325MG, 5325 MG [Suspect]
     Active Substance: ACETAMINOPHEN\OXYCODONE HYDROCHLORIDE
     Indication: STERNOTOMY
     Dosage: ?          QUANTITY:120 TABLET(S);?
     Route: 048
     Dates: start: 20180309
  6. DULOXETINE. [Concomitant]
     Active Substance: DULOXETINE
  7. BORON [Concomitant]
     Active Substance: BORON

REACTIONS (11)
  - Nausea [None]
  - Feeling jittery [None]
  - Vomiting [None]
  - Product odour abnormal [None]
  - Dyspepsia [None]
  - Drug effect decreased [None]
  - Product substitution issue [None]
  - Headache [None]
  - Pain [None]
  - Paraesthesia [None]
  - Malaise [None]

NARRATIVE: CASE EVENT DATE: 20180309
